FAERS Safety Report 7344569-6 (Version None)
Quarter: 2011Q1

REPORT INFORMATION
  Report Type: 
  Country: None (occurrence: None)
  Receive Date: 20110310
  Receipt Date: 20110228
  Transmission Date: 20110831
  Serious: Yes (Hospitalization, Other)
  Sender: FDA-Public Use
  Company Number: US-ELI_LILLY_AND_COMPANY-US201102004395

PATIENT
  Sex: Female

DRUGS (3)
  1. ATENOLOL [Concomitant]
     Indication: CORONARY ARTERY DISEASE
     Dosage: 50 MG, UNKNOWN
     Dates: start: 20100510
  2. PREVACID [Concomitant]
     Dosage: 30 MG, UNKNOWN
     Dates: start: 20101028
  3. EFFIENT [Suspect]
     Indication: ACUTE CORONARY SYNDROME
     Dosage: 10 MG, UNKNOWN
     Dates: start: 20101028, end: 20110203

REACTIONS (5)
  - ADVERSE DRUG REACTION [None]
  - SKIN ULCER [None]
  - THROMBOPHLEBITIS [None]
  - PAIN IN EXTREMITY [None]
  - OEDEMA [None]
